FAERS Safety Report 6974490-4 (Version None)
Quarter: 2010Q3

REPORT INFORMATION
  Report Type: 
  Country: None (occurrence: None)
  Receive Date: 20100909
  Receipt Date: 20100830
  Transmission Date: 20110219
  Serious: Yes (Other)
  Sender: FDA-Public Use
  Company Number: US-MERCK-1004USA04689

PATIENT
  Age: 36 Month
  Sex: Female
  Weight: 23 kg

DRUGS (6)
  1. SINGULAIR [Suspect]
     Indication: ASTHMA
     Route: 048
     Dates: start: 20080508, end: 20100423
  2. ZYRTEC [Concomitant]
     Indication: HYPERSENSITIVITY
     Route: 048
  3. NASONEX [Concomitant]
     Indication: HYPERSENSITIVITY
     Route: 065
  4. FLOVENT [Concomitant]
     Indication: ASTHMA
     Route: 065
  5. PATADAY [Concomitant]
     Indication: HYPERSENSITIVITY
     Route: 047
  6. ALBUTEROL [Concomitant]
     Indication: ASTHMA
     Route: 065

REACTIONS (2)
  - AGGRESSION [None]
  - SUICIDAL IDEATION [None]
